FAERS Safety Report 9486230 (Version 1)
Quarter: 2013Q3

REPORT INFORMATION
  Report Type: Spontaneous
  Country: JP (occurrence: JP)
  Receive Date: 20130829
  Receipt Date: 20130829
  Transmission Date: 20140515
  Serious: Yes (Other)
  Sender: FDA-Public Use
  Company Number: JP-PFIZER INC-2013248423

PATIENT
  Sex: 0
  Weight: 80 kg

DRUGS (1)
  1. JZOLOFT [Suspect]
     Dosage: UNK
     Route: 048
     Dates: start: 2012

REACTIONS (5)
  - Suicidal ideation [Unknown]
  - Mental disorder [Unknown]
  - Apathy [Unknown]
  - Asthenia [Unknown]
  - Weight decreased [Unknown]
